FAERS Safety Report 24041313 (Version 1)
Quarter: 2024Q3

REPORT INFORMATION
  Report Type: Spontaneous
  Country: US (occurrence: US)
  Receive Date: 20240702
  Receipt Date: 20240702
  Transmission Date: 20241017
  Serious: No
  Sender: SAREPTA THERAPEUTICS
  Company Number: US-SAREPTA THERAPEUTICS INC.-SRP2023-003555

PATIENT
  Sex: Male
  Weight: 45.351 kg

DRUGS (4)
  1. EXONDYS 51 [Suspect]
     Active Substance: ETEPLIRSEN
     Indication: Product used for unknown indication
     Dosage: 1200 MILLIGRAM, WEEKLY
     Route: 042
     Dates: start: 201704
  2. EXONDYS 51 [Suspect]
     Active Substance: ETEPLIRSEN
     Dosage: 1200 MILLIGRAM, WEEKLY
     Route: 042
     Dates: start: 20230703
  3. LISINOPRIL [Concomitant]
     Active Substance: LISINOPRIL
     Indication: Myocardial fibrosis
     Dosage: UNK
  4. ALDACTONE [Concomitant]
     Active Substance: SPIRONOLACTONE
     Indication: Myocardial fibrosis
     Dosage: UNK

REACTIONS (2)
  - Intentional dose omission [Unknown]
  - No adverse event [Unknown]
